FAERS Safety Report 19227831 (Version 1)
Quarter: 2021Q2

REPORT INFORMATION
  Report Type: Spontaneous
  Country: US (occurrence: US)
  Receive Date: 20210507
  Receipt Date: 20210507
  Transmission Date: 20210717
  Serious: No
  Sender: FDA-Public Use
  Company Number: US-SA-2021SA139290

PATIENT

DRUGS (1)
  1. TAXOTERE [Suspect]
     Active Substance: DOCETAXEL

REACTIONS (3)
  - Dacryostenosis acquired [Unknown]
  - Ocular discomfort [Unknown]
  - Lacrimation increased [Unknown]
